FAERS Safety Report 5415801-0 (Version None)
Quarter: 2007Q3

REPORT INFORMATION
  Report Type: 
  Country: None (occurrence: None)
  Receive Date: 20070815
  Receipt Date: 20070809
  Transmission Date: 20080115
  Serious: Yes (Other)
  Sender: FDA-Public Use
  Company Number: US-ASTRAZENECA-2007UW19338

PATIENT
  Sex: Female

DRUGS (4)
  1. SEROQUEL [Suspect]
     Indication: ANXIETY
     Dates: start: 20070701
  2. NEURONTIN [Concomitant]
  3. PROZAC [Concomitant]
  4. TRAZODONE HCL [Concomitant]

REACTIONS (3)
  - DYSARTHRIA [None]
  - FEELING ABNORMAL [None]
  - MULTIPLE SCLEROSIS [None]
